FAERS Safety Report 26125795 (Version 2)
Quarter: 2025Q4

REPORT INFORMATION
  Report Type: Spontaneous
  Country: EU (occurrence: EU)
  Receive Date: 20251205
  Receipt Date: 20251211
  Transmission Date: 20260118
  Serious: Yes (Other)
  Sender: PFIZER
  Company Number: None

PATIENT
  Age: 78 Year
  Sex: Female
  Weight: 51 kg

DRUGS (6)
  1. INFLIXIMAB [Suspect]
     Active Substance: INFLIXIMAB
     Indication: Crohn^s disease
     Dosage: 300 MG / EVERY 8 WEEKS
     Route: 042
     Dates: start: 20180215, end: 20220201
  2. INFLIXIMAB [Suspect]
     Active Substance: INFLIXIMAB
     Dosage: 300 MG / EVERY 8 WEEKS
     Route: 042
     Dates: start: 20221004, end: 20240123
  3. ADALIMUMAB [Suspect]
     Active Substance: ADALIMUMAB
     Indication: Crohn^s disease
     Dosage: 2 X 80 MG AS INDUCTION TREATMENT ON 04JUL2025) (160/80/40), ONE INJECTION EVERY 15 DAYS
     Route: 058
     Dates: start: 20240704, end: 202409
  4. ADALIMUMAB [Suspect]
     Active Substance: ADALIMUMAB
     Dosage: INCREASE ADALIMUMAB TO 80 MG EVERY 2 WEEKS
     Dates: start: 202410, end: 202501
  5. ADALIMUMAB [Suspect]
     Active Substance: ADALIMUMAB
     Dosage: 40 MG EVERY 2 WEEKS.
     Dates: start: 202501, end: 20250318
  6. INFLIXIMAB [Suspect]
     Active Substance: INFLIXIMAB
     Indication: Crohn^s disease
     Dosage: 120 MG EVERY 15 DAYS
     Route: 058
     Dates: start: 20220329

REACTIONS (4)
  - Restless legs syndrome [Recovered/Resolved]
  - Ocular rosacea [Recovering/Resolving]
  - Rosacea [Recovering/Resolving]
  - Overdose [Unknown]
